FAERS Safety Report 25526381 (Version 1)
Quarter: 2025Q3

REPORT INFORMATION
  Report Type: Spontaneous
  Country: US (occurrence: US)
  Receive Date: 20250707
  Receipt Date: 20250707
  Transmission Date: 20251021
  Serious: Yes (Hospitalization)
  Sender: MYLAN
  Company Number: US-MYLANLABS-2025M1055150

PATIENT
  Age: 59 Year
  Sex: Male

DRUGS (8)
  1. ACETAMINOPHEN [Suspect]
     Active Substance: ACETAMINOPHEN
     Indication: Premedication
  2. ACETAMINOPHEN [Suspect]
     Active Substance: ACETAMINOPHEN
     Indication: Cytokine release syndrome
     Route: 065
  3. ACETAMINOPHEN [Suspect]
     Active Substance: ACETAMINOPHEN
     Route: 065
  4. ACETAMINOPHEN [Suspect]
     Active Substance: ACETAMINOPHEN
  5. LUNSUMIO [Concomitant]
     Active Substance: MOSUNETUZUMAB-AXGB
     Indication: Follicular lymphoma refractory
  6. LUNSUMIO [Concomitant]
     Active Substance: MOSUNETUZUMAB-AXGB
     Route: 065
  7. LUNSUMIO [Concomitant]
     Active Substance: MOSUNETUZUMAB-AXGB
     Route: 065
  8. LUNSUMIO [Concomitant]
     Active Substance: MOSUNETUZUMAB-AXGB

REACTIONS (1)
  - Drug ineffective [Unknown]
